FAERS Safety Report 8518909 (Version 2)
Quarter: 2012Q4

REPORT INFORMATION
  Report Type: 
  Country: US (occurrence: US)
  Receive Date: 20120418
  Receipt Date: 20121022
  Transmission Date: 20130627
  Serious: Yes (Hospitalization)
  Sender: FDA-Public Use
  Company Number: US-BAYER-2012-035459

PATIENT
  Age: 31 Year
  Sex: Female
  Weight: 81.63 kg

DRUGS (1)
  1. YASMIN [Suspect]
     Indication: MENORRHAGIA
     Dosage: UNK
     Dates: start: 200601, end: 20060409

REACTIONS (11)
  - Deep vein thrombosis [None]
  - Post thrombotic syndrome [None]
  - Injury [None]
  - Anxiety [None]
  - Emotional distress [None]
  - Pain [None]
  - General physical health deterioration [None]
  - Oedema peripheral [None]
  - Fatigue [None]
  - Pain in extremity [None]
  - Fear of disease [None]
